FAERS Safety Report 6934511-1 (Version None)
Quarter: 2010Q3

REPORT INFORMATION
  Report Type: 
  Country: None (occurrence: None)
  Receive Date: 20100820
  Receipt Date: 20100817
  Transmission Date: 20110219
  Serious: Yes (Other)
  Sender: FDA-Public Use
  Company Number: SI-WATSON-2010-11155

PATIENT

DRUGS (1)
  1. DICLOFENAC (WATSON LABORATORIES) [Suspect]
     Indication: OSTEOARTHRITIS
     Dosage: UNK

REACTIONS (3)
  - HYPERKALAEMIA [None]
  - METABOLIC ACIDOSIS [None]
  - QUADRIPARESIS [None]
